FAERS Safety Report 9892466 (Version 1)
Quarter: 2014Q1

REPORT INFORMATION
  Report Type: Spontaneous
  Country: US (occurrence: US)
  Receive Date: 20140212
  Receipt Date: 20140212
  Transmission Date: 20141002
  Serious: No
  Sender: FDA-Public Use
  Company Number: US-ENDO PHARMACEUTICALS INC.-MONT20140001

PATIENT
  Sex: Male

DRUGS (2)
  1. MONTELUKAST SODIUM TABLETS 10MG [Suspect]
     Indication: ASTHMA
     Route: 048
  2. SINGULAIR [Concomitant]
     Indication: ASTHMA
     Route: 048

REACTIONS (1)
  - Drug ineffective [Not Recovered/Not Resolved]
